FAERS Safety Report 9110489 (Version 1)
Quarter: 2013Q1

REPORT INFORMATION
  Report Type: Spontaneous
  Country: US (occurrence: US)
  Receive Date: 20130219
  Receipt Date: 20130219
  Transmission Date: 20140127
  Serious: No
  Sender: FDA-Public Use
  Company Number: US-BRACCO-007855

PATIENT
  Age: 69 Year
  Sex: Female

DRUGS (2)
  1. ISOVUE 300 [Suspect]
     Indication: SURGERY
     Dosage: GIVEN IN ERROR.
     Route: 058
     Dates: start: 20120409, end: 20120409
  2. ISOVUE 300 [Suspect]
     Indication: PRODUCT USED FOR UNKNOWN INDICATION
     Dosage: GIVEN IN ERROR.
     Route: 058
     Dates: start: 20120409, end: 20120409

REACTIONS (2)
  - Wrong drug administered [Recovered/Resolved]
  - Incorrect route of drug administration [Recovered/Resolved]
